FAERS Safety Report 8111007-5 (Version None)
Quarter: 2012Q1

REPORT INFORMATION
  Report Type: 
  Country: None (occurrence: None)
  Receive Date: 20120203
  Receipt Date: 20110209
  Transmission Date: 20120608
  Serious: Yes (Other)
  Sender: FDA-Public Use
  Company Number: US-GLAXOSMITHKLINE-A0912687A

PATIENT
  Age: 30 Year
  Sex: Female

DRUGS (6)
  1. PAXIL CR [Concomitant]
     Dosage: 12.5MG PER DAY
  2. LAMICTAL [Suspect]
     Indication: BIPOLAR DISORDER
     Dosage: 75MG CUMULATIVE DOSE
     Route: 048
     Dates: start: 20110204, end: 20110205
  3. VALPROATE SODIUM [Concomitant]
     Dosage: 500MG TWICE PER DAY
  4. ALPRAZOLAM [Concomitant]
     Dosage: 2MG TWICE PER DAY
  5. NEOCON [Concomitant]
     Indication: CONTRACEPTION
  6. BUPROPION HYDROCHLORIDE [Suspect]
     Indication: DEPRESSION
     Dosage: 300MG PER DAY
     Route: 048
     Dates: start: 20100101, end: 20101201

REACTIONS (3)
  - CONVULSION [None]
  - RASH [None]
  - CONTUSION [None]
